FAERS Safety Report 7320976-2 (Version None)
Quarter: 2011Q1

REPORT INFORMATION
  Report Type: 
  Country: None (occurrence: None)
  Receive Date: 20110228
  Receipt Date: 20110221
  Transmission Date: 20110831
  Serious: Yes (Other)
  Sender: FDA-Public Use
  Company Number: JP-PFIZER INC-2011026519

PATIENT
  Age: 73 Year
  Sex: Male
  Weight: 49 kg

DRUGS (9)
  1. OMEPRAL [Concomitant]
     Indication: GASTRIC ULCER
     Dosage: 20 MG, 1X/DAY
     Route: 048
  2. ZYVOX [Suspect]
     Dosage: 600 MG, 2X/DAY
     Route: 048
     Dates: start: 20101115, end: 20101206
  3. PREDONINE [Concomitant]
     Indication: RHEUMATOID ARTHRITIS
     Dosage: UNK
     Route: 048
  4. URINORM [Concomitant]
     Indication: HYPERURICAEMIA
     Dosage: 50 MG, 1X/DAY
     Route: 048
  5. BENET [Concomitant]
     Indication: OSTEOPOROSIS
     Dosage: 17.5 MG, WEEKLY
     Route: 048
  6. CALBLOCK [Concomitant]
     Indication: HYPERTENSION
     Dosage: 16 MG, 1X/DAY
     Route: 048
     Dates: start: 20100913
  7. ZYVOX [Suspect]
     Indication: STAPHYLOCOCCAL INFECTION
     Dosage: 600 MG, 2X/DAY
     Route: 041
     Dates: start: 20101025, end: 20101114
  8. URALYT [Concomitant]
     Indication: HYPERURICAEMIA
     Dosage: 1 DF, 1X/DAY
     Route: 048
  9. BIOFERMIN R [Concomitant]
     Indication: DIARRHOEA
     Dosage: 1 DF, 3X/DAY
     Route: 048
     Dates: start: 20100907, end: 20110112

REACTIONS (3)
  - HAEMOGLOBIN DECREASED [None]
  - DECREASED APPETITE [None]
  - STOMATITIS [None]
